FAERS Safety Report 10108865 (Version 1)
Quarter: 2014Q2

REPORT INFORMATION
  Report Type: Spontaneous
  Country: GB (occurrence: GB)
  Receive Date: 20140425
  Receipt Date: 20140425
  Transmission Date: 20141212
  Serious: Yes (Death, Other)
  Sender: FDA-Public Use
  Company Number: GB-ACCORD-023328

PATIENT
  Age: 76 Year
  Sex: Male

DRUGS (1)
  1. FLUOROURACIL [Suspect]
     Indication: OESOPHAGEAL CARCINOMA
     Dosage: OVER 46 HOURS
     Route: 042
     Dates: start: 20140228

REACTIONS (2)
  - Incorrect drug administration rate [Unknown]
  - Toxicity to various agents [Fatal]
